FAERS Safety Report 7491005-5 (Version None)
Quarter: 2011Q2

REPORT INFORMATION
  Report Type: 
  Country: None (occurrence: None)
  Receive Date: 20110519
  Receipt Date: 20110510
  Transmission Date: 20111010
  Serious: Yes (Hospitalization)
  Sender: FDA-Public Use
  Company Number: FR-ACTELION-A-CH2011-48570

PATIENT
  Sex: Female

DRUGS (23)
  1. VASTAREL [Concomitant]
  2. ATHYMIL [Concomitant]
  3. REVATIO [Concomitant]
  4. VERPAMIL HCL [Concomitant]
  5. MIANSERINE [Concomitant]
  6. ATARAX [Concomitant]
  7. VALSARTAN [Concomitant]
  8. TANGANIL [Concomitant]
  9. COUMADIN [Suspect]
     Dosage: UNK
     Dates: start: 20110414
  10. LEVOTHYROXINE SODIUM [Concomitant]
  11. TRAMADOL HCL [Concomitant]
  12. LORAZEPAM [Concomitant]
  13. XYZAL [Concomitant]
  14. AMARYL [Concomitant]
  15. LANZOR [Concomitant]
  16. LORAZEPAM [Concomitant]
  17. SECTRAL [Concomitant]
  18. TRACLEER [Suspect]
     Indication: PULMONARY ARTERIAL HYPERTENSION
     Route: 048
  19. COUMADIN [Suspect]
     Dosage: UNK
     Dates: end: 20110413
  20. MOTILIUM [Concomitant]
  21. IMOVANE [Concomitant]
  22. ZOLPIDEM [Concomitant]
  23. FLOLAN [Concomitant]
     Dosage: UNK
     Dates: start: 20040416

REACTIONS (7)
  - THROMBOCYTOPENIA [None]
  - RECTAL HAEMORRHAGE [None]
  - EPISTAXIS [None]
  - SPINAL MYELOGRAM [None]
  - TRANSFUSION [None]
  - LOWER GASTROINTESTINAL HAEMORRHAGE [None]
  - MELAENA [None]
